FAERS Safety Report 14372768 (Version 2)
Quarter: 2018Q1

REPORT INFORMATION
  Report Type: Spontaneous
  Country: AT (occurrence: AT)
  Receive Date: 20180110
  Receipt Date: 20180213
  Transmission Date: 20180509
  Serious: Yes (Hospitalization, Other)
  Sender: FDA-Public Use
  Company Number: AT-TEVA-2018-AT-842923

PATIENT
  Age: 17 Year
  Sex: Female

DRUGS (17)
  1. LORAZEPAM. [Interacting]
     Active Substance: LORAZEPAM
     Dosage: 2.5MG, QD
     Route: 065
     Dates: start: 20151107, end: 20151107
  2. ABILIFY [Interacting]
     Active Substance: ARIPIPRAZOLE
     Indication: TIC
     Dosage: 10 MG, UNK
     Route: 048
     Dates: start: 20151109, end: 20151111
  3. SEROQUEL [Suspect]
     Active Substance: QUETIAPINE FUMARATE
     Indication: TIC
     Dosage: 700 MG, UNK
     Route: 065
     Dates: start: 20151109
  4. NOZINAN [Suspect]
     Active Substance: LEVOMEPROMAZINE
     Indication: PRODUCT USED FOR UNKNOWN INDICATION
     Dosage: 50 MG, UNK
     Route: 048
     Dates: start: 20151106, end: 20151106
  5. LORAZEPAM. [Interacting]
     Active Substance: LORAZEPAM
     Indication: PRODUCT USED FOR UNKNOWN INDICATION
     Route: 042
     Dates: start: 20151108, end: 20151111
  6. LORAZEPAM. [Interacting]
     Active Substance: LORAZEPAM
     Route: 048
     Dates: start: 20151112
  7. NOZINAN [Suspect]
     Active Substance: LEVOMEPROMAZINE
     Indication: PRODUCT USED FOR UNKNOWN INDICATION
     Dosage: 150 MG, UNK
     Route: 065
     Dates: start: 20151107, end: 20151107
  8. DEPAKINE [Concomitant]
     Active Substance: VALPROATE SODIUM
     Indication: PRODUCT USED FOR UNKNOWN INDICATION
     Dosage: 1000 MG, QD
     Route: 065
  9. QUETIAPINE. [Interacting]
     Active Substance: QUETIAPINE
     Indication: PERSONALITY DISORDER
     Dosage: 200 MG, UNK
     Route: 048
     Dates: end: 20151108
  10. LEVOMEPROMAZINE [Interacting]
     Active Substance: LEVOMEPROMAZINE
     Indication: PRODUCT USED FOR UNKNOWN INDICATION
     Dosage: 150 MG, UNK
     Route: 065
     Dates: start: 20151107, end: 20151107
  11. LEVOMEPROMAZINE [Interacting]
     Active Substance: LEVOMEPROMAZINE
     Dosage: 50 MG, UNK
     Route: 048
     Dates: start: 20151106, end: 20151106
  12. TEMESTA EXPIDET [Suspect]
     Active Substance: LORAZEPAM
     Indication: PRODUCT USED FOR UNKNOWN INDICATION
     Dosage: 2.5 MG, UNK
     Dates: start: 201107
  13. QUETIAPINE. [Suspect]
     Active Substance: QUETIAPINE
     Indication: TIC
     Dosage: 700 MG, UNK
     Route: 065
     Dates: start: 20151109
  14. LORAZEPAM. [Interacting]
     Active Substance: LORAZEPAM
     Route: 042
     Dates: start: 20151105, end: 20151105
  15. SEROQUEL [Suspect]
     Active Substance: QUETIAPINE FUMARATE
     Indication: PERSONALITY DISORDER
     Dosage: 200 MG, UNK
     Route: 048
     Dates: end: 20151108
  16. DEPAKINE [Concomitant]
     Active Substance: VALPROATE SODIUM
     Indication: PRODUCT USED FOR UNKNOWN INDICATION
     Dosage: 600 MG, QD
     Route: 065
     Dates: start: 20151108
  17. ABILIFY [Interacting]
     Active Substance: ARIPIPRAZOLE
     Indication: PERSONALITY DISORDER
     Dosage: 15 MG, UNK
     Route: 048
     Dates: start: 20151105, end: 20151108

REACTIONS (2)
  - Drug interaction [Unknown]
  - Urinary retention [Recovered/Resolved]

NARRATIVE: CASE EVENT DATE: 20151108
